FAERS Safety Report 8350683-9 (Version None)
Quarter: 2012Q2

REPORT INFORMATION
  Report Type: 
  Country: None (occurrence: None)
  Receive Date: 20120510
  Receipt Date: 20120430
  Transmission Date: 20120825
  Serious: Yes (Other)
  Sender: FDA-Public Use
  Company Number: US-JNJFOC-20120502926

PATIENT
  Age: 79 Year
  Sex: Female
  Weight: 86.64 kg

DRUGS (7)
  1. IMODIUM A-D [Suspect]
     Route: 048
  2. WARFARIN SODIUM [Concomitant]
     Indication: CARDIAC DISORDER
     Route: 065
  3. IMODIUM A-D [Suspect]
     Indication: DIARRHOEA
     Dosage: 1 TABLESPOON PER DAY,FOR ABOUT AN YEAR
     Route: 048
  4. METOPROLOL TARTRATE [Concomitant]
     Indication: HEART RATE IRREGULAR
     Route: 065
  5. LEVOTHYROXINE SODIUM [Concomitant]
     Indication: HYPOTHYROIDISM
     Route: 065
  6. CLARITIN [Concomitant]
     Indication: SEASONAL ALLERGY
     Route: 065
  7. MECLIZINE [Concomitant]
     Indication: DIZZINESS
     Route: 065

REACTIONS (1)
  - URINARY TRACT INFECTION [None]
